FAERS Safety Report 11525327 (Version 4)
Quarter: 2015Q4

REPORT INFORMATION
  Report Type: Spontaneous
  Country: US (occurrence: US)
  Receive Date: 20150918
  Receipt Date: 20151105
  Transmission Date: 20160304
  Serious: Yes (Death, Hospitalization)
  Sender: FDA-Public Use
  Company Number: US-UNITED THERAPEUTICS-UNT-2015-011458

PATIENT
  Age: 72 Year
  Sex: Female
  Weight: 39.91 kg

DRUGS (2)
  1. REMODULIN [Suspect]
     Active Substance: TREPROSTINIL
     Indication: PULMONARY HYPERTENSION
     Dosage: 0.058 ?G/KG, CONTINUING
     Route: 041
     Dates: start: 20130830, end: 20151006
  2. OPSUMIT [Concomitant]
     Active Substance: MACITENTAN
     Indication: PRODUCT USED FOR UNKNOWN INDICATION

REACTIONS (8)
  - Fall [Recovered/Resolved]
  - Scleroderma [Unknown]
  - Hypokalaemia [Not Recovered/Not Resolved]
  - Death [Fatal]
  - Malnutrition [Not Recovered/Not Resolved]
  - Hypomagnesaemia [Not Recovered/Not Resolved]
  - Feeding disorder [Not Recovered/Not Resolved]
  - Weight decreased [Not Recovered/Not Resolved]

NARRATIVE: CASE EVENT DATE: 20150910
